FAERS Safety Report 9479373 (Version 3)
Quarter: 2014Q2

REPORT INFORMATION
  Report Type: Spontaneous
  Country: US (occurrence: US)
  Receive Date: 20130827
  Receipt Date: 20140618
  Transmission Date: 20141212
  Serious: No
  Sender: FDA-Public Use
  Company Number: US-PFIZER INC-2013243197

PATIENT
  Sex: Female

DRUGS (3)
  1. PREMARIN [Suspect]
     Dosage: 1.25 MG, UNK
     Route: 048
  2. PREMARIN [Suspect]
     Dosage: 0.625 MG, 2X/DAY
     Route: 048
  3. PREMARIN [Suspect]
     Dosage: 1.25 MG, UNK
     Route: 048

REACTIONS (2)
  - Drug ineffective [Unknown]
  - Feeling abnormal [Unknown]
